FAERS Safety Report 6385421-2 (Version None)
Quarter: 2009Q4

REPORT INFORMATION
  Report Type: 
  Country: None (occurrence: None)
  Receive Date: 20091002
  Receipt Date: 20081007
  Transmission Date: 20100525
  Serious: No
  Sender: FDA-Public Use
  Company Number: US-ASTRAZENECA-2008UW18496

PATIENT
  Age: 64 Year
  Sex: Female
  Weight: 77.6 kg

DRUGS (11)
  1. ARIMIDEX [Suspect]
     Indication: BREAST CANCER FEMALE
     Route: 048
     Dates: start: 20080601, end: 20080918
  2. VALIUM [Concomitant]
  3. EFFEXOR [Concomitant]
  4. ZYRTEC [Concomitant]
  5. ATENOLOL [Concomitant]
  6. ACCUPRIL [Concomitant]
  7. AVALIDE [Concomitant]
  8. ACTONEL [Concomitant]
  9. CALCIUM CITRATE [Concomitant]
  10. CRESTOR [Concomitant]
     Route: 048
  11. TRICOR [Concomitant]

REACTIONS (1)
  - MIGRAINE [None]
